FAERS Safety Report 14072764 (Version 1)
Quarter: 2017Q4

REPORT INFORMATION
  Report Type: Spontaneous
  Country: US (occurrence: None)
  Receive Date: 20171011
  Receipt Date: 20171011
  Transmission Date: 20180321
  Serious: No
  Sender: FDA-Public Use
  Company Number: None

PATIENT

DRUGS (2)
  1. KEPPRA [Suspect]
     Active Substance: LEVETIRACETAM
  2. DILANTIN [Suspect]
     Active Substance: PHENYTOIN

REACTIONS (7)
  - Vertigo [None]
  - Amnesia [None]
  - Malaise [None]
  - Dizziness [None]
  - Seizure [None]
  - Incorrect dose administered [None]
  - Drug dispensing error [None]

NARRATIVE: CASE EVENT DATE: 2017
